FAERS Safety Report 22203332 (Version 2)
Quarter: 2024Q1

REPORT INFORMATION
  Report Type: Report from Study
  Country: BE (occurrence: BE)
  Receive Date: 20230412
  Receipt Date: 20240109
  Transmission Date: 20240409
  Serious: Yes (Other)
  Sender: FDA-Public Use
  Company Number: BE-002147023-NVSC2023BE082264

PATIENT
  Sex: Female

DRUGS (1)
  1. KESIMPTA [Suspect]
     Active Substance: OFATUMUMAB
     Indication: Relapsing multiple sclerosis
     Dosage: 20 MG
     Route: 058
     Dates: start: 20230406

REACTIONS (3)
  - Paralysis [Unknown]
  - Malaise [Unknown]
  - Gait disturbance [Unknown]
